FAERS Safety Report 4810884-0 (Version None)
Quarter: 2005Q4

REPORT INFORMATION
  Report Type: 
  Country: None (occurrence: None)
  Receive Date: 20051027
  Receipt Date: 20051020
  Transmission Date: 20060501
  Serious: Yes (Other)
  Sender: FDA-Public Use
  Company Number: ES-BOEHRINGER INGELHEIM PHARMACEUTICALS, INC.-2005-DE-04397GD

PATIENT
  Sex: Male

DRUGS (3)
  1. NEVIRAPINE [Suspect]
     Indication: HIV TEST POSITIVE
  2. STAVUDINE [Suspect]
     Indication: HIV TEST POSITIVE
  3. DIDANOSINE [Suspect]
     Indication: HIV TEST POSITIVE

REACTIONS (3)
  - DRUG EFFECT DECREASED [None]
  - DRUG RESISTANCE [None]
  - VIRAL MUTATION IDENTIFIED [None]
